FAERS Safety Report 18956678 (Version 1)
Quarter: 2021Q1

REPORT INFORMATION
  Report Type: Spontaneous
  Country: US (occurrence: US)
  Receive Date: 20210301
  Receipt Date: 20210301
  Transmission Date: 20210420
  Serious: Yes (Other)
  Sender: FDA-Public Use
  Company Number: US-ESPERIONTHERAPEUTICS-2021USA00403

PATIENT
  Age: 7 Decade
  Sex: Female

DRUGS (2)
  1. LIPITOR [Concomitant]
     Active Substance: ATORVASTATIN CALCIUM
     Dosage: UNK
     Route: 065
  2. NEXLETOL [Suspect]
     Active Substance: BEMPEDOIC ACID
     Indication: ARTERIOSCLEROSIS
     Route: 065

REACTIONS (1)
  - Rhabdomyolysis [Unknown]
